FAERS Safety Report 7302682-3 (Version None)
Quarter: 2011Q1

REPORT INFORMATION
  Report Type: 
  Country: None (occurrence: None)
  Receive Date: 20110218
  Receipt Date: 20110214
  Transmission Date: 20110831
  Serious: Yes (Other)
  Sender: FDA-Public Use
  Company Number: US-US-EMD SERONO, INC.-232158J09USA

PATIENT
  Sex: Female

DRUGS (4)
  1. TYLENOL EXTRA STRENGTH [Concomitant]
     Indication: PREMEDICATION
     Route: 065
  2. REBIF [Suspect]
     Route: 058
     Dates: start: 20091113
  3. REBIF [Suspect]
     Indication: MULTIPLE SCLEROSIS
     Route: 058
     Dates: start: 20081028, end: 20091031
  4. TYLENOL PM [Concomitant]
     Indication: PREMEDICATION
     Route: 065

REACTIONS (3)
  - INJECTION SITE PAIN [None]
  - FEELING HOT [None]
  - OVARIAN MASS [None]
